FAERS Safety Report 8445570 (Version 2)
Quarter: 2013Q4

REPORT INFORMATION
  Report Type: Spontaneous
  Country: US (occurrence: None)
  Receive Date: 20120126
  Receipt Date: 20131226
  Transmission Date: 20140711
  Serious: No
  Sender: FDA-Public Use
  Company Number: PHEH2011US009992

PATIENT
  Age: 2 Year
  Sex: Female
  Weight: 35 kg

DRUGS (5)
  1. AFINITOR [Suspect]
     Indication: ASTROCYTOMA MALIGNANT
     Dosage: 2.5MG, DAILY, ORAL
     Route: 048
     Dates: start: 20111109
  2. VIGABATRIN (VIGABATRIN) [Concomitant]
  3. TRAZODONE HYDROCHLORIDE [Concomitant]
  4. KLONOPIN [Concomitant]
  5. DIASTAT [Concomitant]

REACTIONS (3)
  - Pharyngitis streptococcal [None]
  - Nasopharyngitis [None]
  - Irritability [None]
